FAERS Safety Report 7928505-7 (Version None)
Quarter: 2011Q4

REPORT INFORMATION
  Report Type: 
  Country: None (occurrence: None)
  Receive Date: 20111118
  Receipt Date: 20111108
  Transmission Date: 20120403
  Serious: Yes (Other)
  Sender: FDA-Public Use
  Company Number: CA-ELI_LILLY_AND_COMPANY-CA201111002367

PATIENT
  Sex: Male

DRUGS (7)
  1. COGENTIN [Concomitant]
  2. ALTACE [Concomitant]
  3. WELLBUTRIN [Concomitant]
  4. REMERON [Concomitant]
  5. ZYPREXA [Suspect]
     Indication: SCHIZOPHRENIA
     Dosage: 10 MG, UNK
  6. CELEXA [Concomitant]
  7. ZYPREXA [Suspect]
     Indication: SCHIZOPHRENIA
     Dosage: 2.5 MG, UNK
     Dates: start: 20040116

REACTIONS (5)
  - URINARY TRACT INFECTION [None]
  - HYPERGLYCAEMIA [None]
  - RENAL FAILURE CHRONIC [None]
  - BRONCHITIS [None]
  - BLOOD PRESSURE INCREASED [None]
